FAERS Safety Report 11138335 (Version 2)
Quarter: 2015Q2

REPORT INFORMATION
  Report Type: Spontaneous
  Country: JP (occurrence: JP)
  Receive Date: 20150526
  Receipt Date: 20150527
  Transmission Date: 20150821
  Serious: Yes (Death, Other)
  Sender: FDA-Public Use
  Company Number: JP-ABBVIE-15P-087-1398160-00

PATIENT

DRUGS (1)
  1. CLARITH TAB 200 MG [Suspect]
     Active Substance: CLARITHROMYCIN
     Indication: DECUBITUS ULCER
     Route: 048

REACTIONS (3)
  - Hepatic function abnormal [Fatal]
  - Depressed level of consciousness [Fatal]
  - Death [Fatal]
